FAERS Safety Report 24894387 (Version 1)
Quarter: 2025Q1

REPORT INFORMATION
  Report Type: Spontaneous
  Country: CN (occurrence: CN)
  Receive Date: 20250128
  Receipt Date: 20250128
  Transmission Date: 20250409
  Serious: Yes (Other)
  Sender: ORGANON
  Company Number: CN-ORGANON-O2501CHN002830

PATIENT
  Age: 70 Year
  Sex: Male

DRUGS (1)
  1. REMERON [Suspect]
     Active Substance: MIRTAZAPINE
     Indication: Mental disorder
     Dosage: 15 MILLIGRAM, QD
     Route: 048
     Dates: start: 20250120, end: 20250120

REACTIONS (2)
  - Depressed level of consciousness [Recovered/Resolved]
  - Product use in unapproved indication [Unknown]

NARRATIVE: CASE EVENT DATE: 20250120
